FAERS Safety Report 20690467 (Version 2)
Quarter: 2022Q2

REPORT INFORMATION
  Report Type: Report from Study
  Country: FR (occurrence: FR)
  Receive Date: 20220408
  Receipt Date: 20220415
  Transmission Date: 20220721
  Serious: Yes (Hospitalization, Other)
  Sender: FDA-Public Use
  Company Number: FR-GILEAD-2022-0568974

PATIENT
  Age: 32 Year
  Sex: Female
  Weight: 55 kg

DRUGS (2)
  1. SACITUZUMAB GOVITECAN [Suspect]
     Active Substance: SACITUZUMAB GOVITECAN
     Indication: Triple negative breast cancer
     Dosage: C3D8, STOPPED AT 70 ML, RESTARTED AND GOT 58 ML MORE
     Route: 042
     Dates: start: 20220203, end: 20220203
  2. SACITUZUMAB GOVITECAN [Suspect]
     Active Substance: SACITUZUMAB GOVITECAN
     Dosage: UNK,
     Route: 042

REACTIONS (2)
  - Disease progression [Unknown]
  - Abdominal pain [Recovered/Resolved]

NARRATIVE: CASE EVENT DATE: 20220203
